FAERS Safety Report 6424715-9 (Version None)
Quarter: 2009Q4

REPORT INFORMATION
  Report Type: 
  Country: None (occurrence: None)
  Receive Date: 20091029
  Receipt Date: 20091016
  Transmission Date: 20100525
  Serious: Yes (Life-Threatening)
  Sender: FDA-Public Use
  Company Number: GXKR2009IN11440

PATIENT
  Age: 25 Year
  Sex: Female
  Weight: 44 kg

DRUGS (10)
  1. ENALAPRIL                (ENALAPRIL MALEATE) TABLET [Suspect]
     Dosage: 2.5 MG, BID
  2. DIGOXIN [Suspect]
     Dosage: 0.25 MG, QD (5 OF 7 DAYS)
  3. MORPHINE [Suspect]
     Indication: PREMEDICATION
     Dosage: 4.5 MG, INJECTION NOS
  4. PROMETHAZINE [Suspect]
     Indication: PREMEDICATION
     Dosage: 25 MG, INJECTION NOS
  5. FUROSEMIDE [Suspect]
     Dosage: 1 DF, QD
  6. POTASSIUM             (POTASSIUM) [Suspect]
     Dosage: 1 DF, QD
  7. SORBITRATE          (ISOSORBIDE DINITRATE) TABLET [Concomitant]
  8. FENTANYL-100 [Concomitant]
  9. THIOPENTAL SODIUM [Concomitant]
  10. ROCURONIUM BROMIDE [Concomitant]

REACTIONS (13)
  - BLOOD CALCIUM DECREASED [None]
  - BLOOD SODIUM DECREASED [None]
  - CARDIAC ARREST [None]
  - CARDIOPULMONARY BYPASS [None]
  - DEHYDRATION [None]
  - DIALYSIS [None]
  - ELECTROCARDIOGRAM QRS COMPLEX PROLONGED [None]
  - HYPERKALAEMIA [None]
  - PUPILLARY REFLEX IMPAIRED [None]
  - RENAL FAILURE CHRONIC [None]
  - RESPIRATORY ACIDOSIS [None]
  - URINE OUTPUT DECREASED [None]
  - VENTRICULAR FIBRILLATION [None]
